FAERS Safety Report 11908244 (Version 2)
Quarter: 2016Q1

REPORT INFORMATION
  Report Type: Spontaneous
  Country: FR (occurrence: FR)
  Receive Date: 20160111
  Receipt Date: 20160114
  Transmission Date: 20160526
  Serious: Yes (Hospitalization, Other)
  Sender: FDA-Public Use
  Company Number: FR-PFIZER INC-2016006134

PATIENT
  Age: 77 Year
  Sex: Female

DRUGS (10)
  1. PLAVIX [Suspect]
     Active Substance: CLOPIDOGREL BISULFATE
     Dosage: UNK
     Route: 048
     Dates: start: 201504, end: 201505
  2. RAMIPRIL. [Suspect]
     Active Substance: RAMIPRIL
     Dosage: UNK
     Route: 048
     Dates: start: 201504, end: 201505
  3. XENETIX [Concomitant]
     Active Substance: IOBITRIDOL
     Indication: ARTERIOGRAM CORONARY
     Dosage: 1 DF, SINGLE
     Route: 042
     Dates: start: 201504, end: 201504
  4. KARDEGIC [Concomitant]
     Active Substance: ASPIRIN LYSINE
     Dosage: UNK
  5. TAHOR [Suspect]
     Active Substance: ATORVASTATIN CALCIUM
     Dosage: UNK
     Route: 048
     Dates: start: 201504, end: 201505
  6. HEPARIN SODIUM. [Concomitant]
     Active Substance: HEPARIN SODIUM
     Indication: ARTERIOGRAM CORONARY
     Dosage: UNK
     Route: 042
     Dates: start: 201504, end: 201504
  7. RISORDAN /07346501/ [Concomitant]
     Active Substance: ISOSORBIDE DINITRATE
     Indication: ARTERIOGRAM CORONARY
     Dosage: UNK
     Route: 042
     Dates: start: 201504, end: 201504
  8. BISOCE [Concomitant]
     Active Substance: BISOPROLOL
     Dosage: UNK
  9. AMLOR [Suspect]
     Active Substance: AMLODIPINE BESYLATE
     Dosage: UNK
     Route: 048
     Dates: start: 201504, end: 201505
  10. INEXIUM /01479302/ [Concomitant]
     Active Substance: ESOMEPRAZOLE MAGNESIUM
     Dosage: UNK

REACTIONS (6)
  - Hyponatraemia [Unknown]
  - Hypokalaemia [Unknown]
  - Atrial fibrillation [Unknown]
  - Pancreatitis [Recovered/Resolved]
  - Acute kidney injury [Recovering/Resolving]
  - Liver injury [Recovered/Resolved]

NARRATIVE: CASE EVENT DATE: 201505
